FAERS Safety Report 20073425 (Version 4)
Quarter: 2022Q2

REPORT INFORMATION
  Report Type: Spontaneous
  Country: ES (occurrence: ES)
  Receive Date: 20211116
  Receipt Date: 20220526
  Transmission Date: 20220720
  Serious: Yes (Life-Threatening, Other)
  Sender: FDA-Public Use
  Company Number: ES-009507513-2107ESP003435

PATIENT
  Age: 9 Year
  Sex: Female

DRUGS (2)
  1. SUGAMMADEX SODIUM [Suspect]
     Active Substance: SUGAMMADEX SODIUM
     Indication: Neuromuscular blockade reversal
     Dosage: 80 MILLIGRAM, 2-3 MINUTES BEFORE EVENT
     Route: 042
     Dates: start: 201907
  2. METAMIZOLE [Concomitant]
     Active Substance: METAMIZOLE
     Indication: Maintenance of anaesthesia
     Dosage: UNK
     Dates: start: 201907

REACTIONS (1)
  - Anaphylactic shock [Recovered/Resolved]

NARRATIVE: CASE EVENT DATE: 20190701
